FAERS Safety Report 8833881 (Version 1)
Quarter: 2012Q4

REPORT INFORMATION
  Report Type: 
  Country: ES (occurrence: ES)
  Receive Date: 20121010
  Receipt Date: 20121010
  Transmission Date: 20130627
  Serious: Yes (Hospitalization)
  Sender: FDA-Public Use
  Company Number: ES-MYLANLABS-2012S1020285

PATIENT
  Age: 41 Year
  Sex: Male

DRUGS (1)
  1. METHADONE [Suspect]
     Route: 065

REACTIONS (9)
  - Rhabdomyolysis [Unknown]
  - Renal failure acute [Recovering/Resolving]
  - Hypotension [Unknown]
  - Vomiting [None]
  - Fall [None]
  - Headache [None]
  - Pyrexia [None]
  - Somnolence [None]
  - Altered state of consciousness [None]
